FAERS Safety Report 9609427 (Version 1)
Quarter: 2013Q4

REPORT INFORMATION
  Report Type: Spontaneous
  Country: GB (occurrence: GB)
  Receive Date: 20131009
  Receipt Date: 20131009
  Transmission Date: 20140711
  Serious: Yes (Hospitalization)
  Sender: FDA-Public Use
  Company Number: GB-BANPHARM-20131748

PATIENT
  Age: 71 Year
  Sex: Male

DRUGS (6)
  1. IBUPROFEN UNKNOWN PRODUCT [Suspect]
     Indication: INFLAMMATION
     Dosage: 600 MG, TID,
     Route: 048
     Dates: start: 20130906, end: 20130913
  2. CO-CODAMOL [Concomitant]
     Dosage: 2 DF, QID,
  3. HYDROXYCARBAMIDE [Concomitant]
     Dosage: 1000 MG, QD,
  4. INFLUENZA [Concomitant]
  5. QUININE SULPHATE [Concomitant]
     Dosage: 300 MG, QD,
  6. RANITIDINE [Concomitant]
     Dosage: 300 MG, QD,

REACTIONS (6)
  - Abdominal pain [Unknown]
  - Faeces discoloured [Unknown]
  - Gastrointestinal haemorrhage [Recovering/Resolving]
  - Frequent bowel movements [Unknown]
  - Dizziness [Unknown]
  - Diarrhoea [Unknown]
